FAERS Safety Report 5389910-9 (Version None)
Quarter: 2007Q3

REPORT INFORMATION
  Report Type: 
  Country: None (occurrence: None)
  Receive Date: 20070718
  Receipt Date: 20070710
  Transmission Date: 20080115
  Serious: Yes (Hospitalization)
  Sender: FDA-Public Use
  Company Number: BR-JNJFOC-20070703298

PATIENT
  Age: 10 Year
  Sex: Female

DRUGS (1)
  1. HALDOL [Suspect]
     Indication: DRUG USE FOR UNKNOWN INDICATION

REACTIONS (5)
  - MIOSIS [None]
  - MUSCLE CONTRACTURE [None]
  - MUSCLE SPASMS [None]
  - NYSTAGMUS [None]
  - OPISTHOTONUS [None]
